FAERS Safety Report 4586352-0 (Version None)
Quarter: 2005Q1

REPORT INFORMATION
  Report Type: 
  Country: None (occurrence: None)
  Receive Date: 20050125
  Receipt Date: 20041028
  Transmission Date: 20050727
  Serious: No
  Sender: FDA-Public Use
  Company Number: USA040876677

PATIENT
  Age: 90 Year
  Sex: Female
  Weight: 48 kg

DRUGS (9)
  1. FORTEO [Suspect]
     Indication: OSTEOPOROSIS
     Dosage: 20 UG/1 DAY
     Dates: start: 20040401
  2. ASPIRIN [Concomitant]
  3. SYNTHROID [Concomitant]
  4. CITRICAL (CALCIUM CARBONATE) [Concomitant]
  5. MAGNESIUM CHELATE [Concomitant]
  6. ZOCOR [Concomitant]
  7. RANITIDINE [Concomitant]
  8. PREVACID [Concomitant]
  9. CLOPIDOGREL [Concomitant]

REACTIONS (4)
  - DYSPHONIA [None]
  - GLAUCOMA [None]
  - MEMORY IMPAIRMENT [None]
  - NERVOUS SYSTEM DISORDER [None]
